FAERS Safety Report 8987561 (Version 1)
Quarter: 2012Q4

REPORT INFORMATION
  Report Type: 
  Country: CN (occurrence: CN)
  Receive Date: 20121227
  Receipt Date: 20121227
  Transmission Date: 20130627
  Serious: Yes (Hospitalization)
  Sender: FDA-Public Use
  Company Number: CN-PFIZER INC-2012329441

PATIENT
  Age: 57 Year
  Sex: Female

DRUGS (1)
  1. LIPITOR [Suspect]
     Indication: ATHEROSCLEROSIS
     Dosage: UNK
     Route: 048
     Dates: start: 2012, end: 20121216

REACTIONS (4)
  - Drug-induced liver injury [Unknown]
  - Gastritis erosive [Unknown]
  - Cholecystitis [Unknown]
  - Hepatic cirrhosis [Unknown]
